FAERS Safety Report 5460373-8 (Version None)
Quarter: 2007Q3

REPORT INFORMATION
  Report Type: 
  Country: None (occurrence: None)
  Receive Date: 20070919
  Receipt Date: 20070702
  Transmission Date: 20080115
  Serious: Yes (Other)
  Sender: FDA-Public Use
  Company Number: US-ASTRAZENECA-2007UW15777

PATIENT
  Sex: Female

DRUGS (4)
  1. SEROQUEL [Suspect]
     Indication: BIPOLAR DISORDER
     Dates: start: 19970101, end: 20010301
  2. SEROQUEL [Suspect]
     Indication: DEPRESSION
     Dates: start: 19970101, end: 20010301
  3. ZYPREXA [Concomitant]
  4. RISPERDAL [Concomitant]
     Dates: start: 19980101, end: 20010101

REACTIONS (3)
  - DIABETES MELLITUS [None]
  - DIABETIC KETOACIDOSIS [None]
  - TYPE 2 DIABETES MELLITUS [None]
